FAERS Safety Report 9357798 (Version 2)
Quarter: 2013Q4

REPORT INFORMATION
  Report Type: Report from Study
  Country: IE (occurrence: IE)
  Receive Date: 20130620
  Receipt Date: 20131121
  Transmission Date: 20140711
  Serious: Yes (Other)
  Sender: FDA-Public Use
  Company Number: IE-US-EMD SERONO, INC.-7217527

PATIENT
  Sex: Male

DRUGS (2)
  1. SAIZEN [Suspect]
     Indication: GROWTH HORMONE DEFICIENCY
     Route: 058
     Dates: start: 20110401, end: 20130305
  2. SAIZEN [Suspect]
     Route: 058
     Dates: start: 20130305

REACTIONS (1)
  - Developmental hip dysplasia [Not Recovered/Not Resolved]
